FAERS Safety Report 11163638 (Version 3)
Quarter: 2015Q3

REPORT INFORMATION
  Report Type: Report from Study
  Country: US (occurrence: US)
  Receive Date: 20150604
  Receipt Date: 20150814
  Transmission Date: 20151125
  Serious: Yes (Other)
  Sender: FDA-Public Use
  Company Number: US-ROCHE-1544046

PATIENT
  Age: 19 Year
  Sex: Male

DRUGS (2)
  1. NUTROPIN AQ [Suspect]
     Active Substance: SOMATROPIN
     Dosage: NUSPIN 20
     Route: 058
     Dates: start: 20150805
  2. NUTROPIN AQ [Suspect]
     Active Substance: SOMATROPIN
     Indication: GROWTH HORMONE DEFICIENCY
     Dosage: NUSPIN 20
     Route: 058
     Dates: end: 201502

REACTIONS (3)
  - Headache [Unknown]
  - Hepatic neoplasm [Not Recovered/Not Resolved]
  - Gastric neoplasm [Unknown]

NARRATIVE: CASE EVENT DATE: 20150805
